FAERS Safety Report 13425869 (Version 1)
Quarter: 2017Q2

REPORT INFORMATION
  Report Type: Spontaneous
  Country: US (occurrence: US)
  Receive Date: 20170410
  Receipt Date: 20170410
  Transmission Date: 20170830
  Serious: No
  Sender: FDA-Public Use
  Company Number: None

PATIENT
  Age: 42 Year
  Sex: Female

DRUGS (1)
  1. COPAXONE [Suspect]
     Active Substance: GLATIRAMER ACETATE
     Indication: MULTIPLE SCLEROSIS

REACTIONS (5)
  - Feeling abnormal [None]
  - Hyperhidrosis [None]
  - Chills [None]
  - Feeling cold [None]
  - Feeling hot [None]

NARRATIVE: CASE EVENT DATE: 20170406
